FAERS Safety Report 14398941 (Version 2)
Quarter: 2018Q2

REPORT INFORMATION
  Report Type: Spontaneous
  Country: US (occurrence: US)
  Receive Date: 20180117
  Receipt Date: 20180512
  Transmission Date: 20180711
  Serious: Yes (Hospitalization)
  Sender: FDA-Public Use
  Company Number: US-JNJFOC-20171212161

PATIENT
  Age: 31 Year
  Sex: Female
  Weight: 64.86 kg

DRUGS (4)
  1. XARELTO [Suspect]
     Active Substance: RIVAROXABAN
     Indication: DEEP VEIN THROMBOSIS
     Dosage: FIRST TWO WEEKS TWICE A DAY AND THEN ONCE A DAY AFTER THAT (DOSES NOT DISTINGUISHED)
     Route: 048
     Dates: start: 20150815, end: 2015
  2. XARELTO [Suspect]
     Active Substance: RIVAROXABAN
     Indication: THROMBOSIS
     Dosage: FIRST TWO WEEKS TWICE A DAY AND THEN ONCE A DAY AFTER THAT (DOSES NOT DISTINGUISHED)
     Route: 048
     Dates: start: 20150815, end: 2015
  3. XARELTO [Suspect]
     Active Substance: RIVAROXABAN
     Indication: DEEP VEIN THROMBOSIS
     Route: 048
     Dates: start: 20150915, end: 20151008
  4. XARELTO [Suspect]
     Active Substance: RIVAROXABAN
     Indication: THROMBOSIS
     Route: 048
     Dates: start: 20150915, end: 20151008

REACTIONS (3)
  - Hypovolaemic shock [Recovering/Resolving]
  - Vomiting [Unknown]
  - Upper gastrointestinal haemorrhage [Recovering/Resolving]

NARRATIVE: CASE EVENT DATE: 2015
